FAERS Safety Report 6469546-9 (Version None)
Quarter: 2009Q4

REPORT INFORMATION
  Report Type: 
  Country: None (occurrence: None)
  Receive Date: 20091203
  Receipt Date: 20091124
  Transmission Date: 20100525
  Serious: Yes (Life-Threatening, Hospitalization)
  Sender: FDA-Public Use
  Company Number: GB-BRISTOL-MYERS SQUIBB COMPANY-14876262

PATIENT
  Age: 76 Year
  Sex: Male

DRUGS (3)
  1. CARBIDOPA + LEVODOPA [Suspect]
     Indication: PARKINSON'S DISEASE
     Dosage: 1 DOSAGE FORM= 1 TABLET
     Route: 048
     Dates: start: 19980701
  2. APOMORPHINE HCL [Suspect]
     Indication: PARKINSON'S DISEASE
     Dosage: REDUCED TO 4MG/H
     Route: 058
     Dates: start: 20060626
  3. LEVODOPA [Concomitant]

REACTIONS (2)
  - HAEMOLYTIC ANAEMIA [None]
  - PNEUMONIA ASPIRATION [None]
